FAERS Safety Report 21819178 (Version 1)
Quarter: 2023Q1

REPORT INFORMATION
  Report Type: Spontaneous
  Country: IT (occurrence: IT)
  Receive Date: 20230104
  Receipt Date: 20230104
  Transmission Date: 20230417
  Serious: Yes (Death, Other)
  Sender: FDA-Public Use
  Company Number: IT-SA-SAC20221021001411

PATIENT
  Age: 50 Year
  Sex: Male

DRUGS (4)
  1. TERIFLUNOMIDE [Suspect]
     Active Substance: TERIFLUNOMIDE
     Indication: Relapsing-remitting multiple sclerosis
     Dosage: UNK
     Route: 048
     Dates: start: 202002
  2. Luvion [Concomitant]
     Indication: Hypertension
     Dosage: UNK
     Route: 065
  3. AMLODIPINE\INDAPAMIDE\PERINDOPRIL [Concomitant]
     Active Substance: AMLODIPINE\INDAPAMIDE\PERINDOPRIL
     Indication: Hypertension
     Dosage: UNK
     Route: 065
  4. TEGRETOL [Concomitant]
     Active Substance: CARBAMAZEPINE
     Indication: Trigeminal neuralgia
     Dosage: 800-1200MG QD
     Route: 065

REACTIONS (2)
  - Cardiac arrest [Fatal]
  - Psoriasis [Unknown]

NARRATIVE: CASE EVENT DATE: 20220828
